FAERS Safety Report 4448205-8 (Version None)
Quarter: 2004Q3

REPORT INFORMATION
  Report Type: 
  Country: None (occurrence: None)
  Receive Date: 20040913
  Receipt Date: 20040902
  Transmission Date: 20050211
  Serious: Yes (Hospitalization)
  Sender: FDA-Public Use
  Company Number: FR-GLAXOSMITHKLINE-B0344144A

PATIENT
  Age: 76 Year
  Sex: Female

DRUGS (9)
  1. DEROXAT [Suspect]
     Route: 048
     Dates: end: 20040326
  2. DIDRONEL [Suspect]
     Indication: OSTEOPOROSIS
     Route: 048
     Dates: end: 20040326
  3. LUTERAN [Suspect]
     Route: 048
     Dates: end: 20040326
  4. OESTRODOSE [Suspect]
     Dates: end: 20040326
  5. AMLOR [Suspect]
     Indication: HYPERTENSION
     Route: 048
  6. TARDYFERON [Concomitant]
     Route: 048
  7. MOPRAL [Concomitant]
     Route: 048
  8. ASPEGIC 325 [Concomitant]
     Route: 048
  9. STILNOX [Concomitant]
     Indication: INSOMNIA
     Route: 048

REACTIONS (5)
  - APRAXIA [None]
  - BALINT'S SYNDROME [None]
  - CEREBRAL INFARCTION [None]
  - DIFFICULTY IN WALKING [None]
  - MEMORY IMPAIRMENT [None]
